FAERS Safety Report 5039984-X (Version None)
Quarter: 2006Q2

REPORT INFORMATION
  Report Type: 
  Country: None (occurrence: None)
  Receive Date: 20060630
  Receipt Date: 20060622
  Transmission Date: 20061013
  Serious: Yes (Disabling)
  Sender: FDA-Public Use
  Company Number: 2006UW13568

PATIENT
  Sex: Male

DRUGS (1)
  1. XYLOCAINE [Suspect]
     Route: 065

REACTIONS (2)
  - NERVE INJURY [None]
  - SKIN LACERATION [None]
